FAERS Safety Report 5758644-0 (Version None)
Quarter: 2008Q2

REPORT INFORMATION
  Report Type: 
  Country: None (occurrence: None)
  Receive Date: 20080603
  Receipt Date: 20080603
  Transmission Date: 20081010
  Serious: Yes (Hospitalization)
  Sender: FDA-Public Use
  Company Number: None

PATIENT
  Age: 45 Year
  Sex: Female
  Weight: 72.5755 kg

DRUGS (1)
  1. AVELOX [Suspect]

REACTIONS (3)
  - GAIT DISTURBANCE [None]
  - JOINT SWELLING [None]
  - PAIN [None]
